FAERS Safety Report 6732161-3 (Version None)
Quarter: 2010Q2

REPORT INFORMATION
  Report Type: 
  Country: None (occurrence: None)
  Receive Date: 20100519
  Receipt Date: 20100511
  Transmission Date: 20101027
  Serious: Yes (Death, Hospitalization)
  Sender: FDA-Public Use
  Company Number: A0784632A

PATIENT
  Age: 66 Year
  Sex: Male
  Weight: 114.5 kg

DRUGS (11)
  1. AVANDIA [Suspect]
     Indication: DIABETES MELLITUS
     Dosage: 4MG PER DAY
     Route: 048
     Dates: start: 20050301, end: 20070330
  2. LIPITOR [Concomitant]
  3. ALTACE [Concomitant]
  4. TOPROL-XL [Concomitant]
  5. PROTONIX [Concomitant]
  6. NORVASC [Concomitant]
  7. PENTOXIFYLLINE [Concomitant]
  8. TRENTAL [Concomitant]
  9. FLOMAX [Concomitant]
  10. CADUET [Concomitant]
  11. NEXIUM [Concomitant]

REACTIONS (13)
  - BLISTER [None]
  - CARDIAC FAILURE CONGESTIVE [None]
  - CONTUSION [None]
  - CORONARY ARTERY DISEASE [None]
  - DECREASED APPETITE [None]
  - DIZZINESS [None]
  - HAEMORRHAGE [None]
  - PULMONARY EMBOLISM [None]
  - RENAL FAILURE [None]
  - SEPTIC SHOCK [None]
  - THROMBOSIS [None]
  - URINE ABNORMALITY [None]
  - VASCULITIS [None]
